FAERS Safety Report 7976773-8 (Version None)
Quarter: 2011Q4

REPORT INFORMATION
  Report Type: 
  Country: None (occurrence: None)
  Receive Date: 20111213
  Receipt Date: 20111110
  Transmission Date: 20120403
  Serious: Yes (Other)
  Sender: FDA-Public Use
  Company Number: US-AMGEN-USASP2011055390

PATIENT
  Age: 73 Year
  Sex: Male
  Weight: 86.168 kg

DRUGS (2)
  1. FLOMAX [Concomitant]
     Dosage: UNK
  2. ENBREL [Suspect]
     Indication: SKIN DISORDER
     Dosage: 25 MG, 2 TIMES/WK
     Route: 058
     Dates: start: 20100211

REACTIONS (3)
  - DIVERTICULITIS [None]
  - INJECTION SITE PAIN [None]
  - INJECTION SITE HAEMATOMA [None]
